FAERS Safety Report 16754845 (Version 1)
Quarter: 2019Q4

REPORT INFORMATION
  Report Type: Spontaneous
  Country: US (occurrence: US)
  Receive Date: 20190828
  Receipt Date: 20190828
  Transmission Date: 20200122
  Serious: Yes (Disabling, Other)
  Sender: FDA-Public Use
  Company Number: None

PATIENT
  Age: 40 Year
  Sex: Female
  Weight: 130.5 kg

DRUGS (22)
  1. FENTANYL TRANSDERMAL SYSTEM [Concomitant]
     Active Substance: FENTANYL
  2. CALCIUM [Concomitant]
     Active Substance: CALCIUM
  3. CHOLOSTRUM SUPPLIMENT [Concomitant]
  4. FENTANYL. [Suspect]
     Active Substance: FENTANYL
     Indication: SPONDYLITIS
  5. SPINAL CHORD STIMULATION [Concomitant]
  6. DEER ANTLER VELVET [Concomitant]
  7. TIZANIDINE. [Concomitant]
     Active Substance: TIZANIDINE
  8. PREGNOLONE [Concomitant]
  9. FERROUS SULFATE. [Concomitant]
     Active Substance: FERROUS SULFATE
  10. FENTANYL. [Suspect]
     Active Substance: FENTANYL
     Indication: PAIN
  11. PERCOCET [Suspect]
     Active Substance: ACETAMINOPHEN\OXYCODONE HYDROCHLORIDE
  12. DHEA [Concomitant]
     Active Substance: PRASTERONE
  13. VITAMIN B COMPLEX [Concomitant]
     Active Substance: CYANOCOBALAMIN\DEXPANTHENOL\NIACINAMIDE\PYRIDOXINE HYDROCHLORIDE\RIBOFLAVIN 5^-PHOSPHATE SODIUM\THIAMINE HYDROCHLORIDE\VITAMIN B COMPLEX
  14. DICLOFENAC [Concomitant]
     Active Substance: DICLOFENAC
  15. VARIOUS VITAMIN AND MINERAL SUPPLEMENT [Concomitant]
  16. ORCHEX [Concomitant]
  17. VITAMIN C [Concomitant]
     Active Substance: ASCORBIC ACID
  18. POTASSIUM [Concomitant]
     Active Substance: POTASSIUM
  19. FENTANYL. [Suspect]
     Active Substance: FENTANYL
     Indication: SPINAL COLUMN INJURY
  20. CYBALTA/TROKENDI [Concomitant]
  21. KETAMINE [Concomitant]
     Active Substance: KETAMINE
  22. MAGNETISM [Concomitant]

REACTIONS (7)
  - Cerebrovascular accident [None]
  - Bedridden [None]
  - Product prescribing issue [None]
  - Patient dissatisfaction with treatment [None]
  - Suicidal ideation [None]
  - Pancreatitis [None]
  - Loss of personal independence in daily activities [None]

NARRATIVE: CASE EVENT DATE: 20180908
